FAERS Safety Report 8553702-X (Version None)
Quarter: 2012Q3

REPORT INFORMATION
  Report Type: 
  Country: None (occurrence: None)
  Receive Date: 20120719
  Receipt Date: 20120713
  Transmission Date: 20120928
  Serious: Yes (Hospitalization)
  Sender: FDA-Public Use
  Company Number: 2012-002541

PATIENT
  Age: 53 Year
  Sex: Female

DRUGS (5)
  1. ATELVIA [Suspect]
     Indication: OSTEOPENIA
     Dosage: 35 MG ONCE WEEKLY, ORAL
     Route: 048
     Dates: start: 20120629
  2. LEVOTHYROXINE SODIUM [Concomitant]
  3. BACLOFEN [Concomitant]
  4. KEFLEX /00145501/ (CEFALEXIN) [Concomitant]
  5. LOVASTATIN [Concomitant]

REACTIONS (3)
  - DIZZINESS [None]
  - PARAESTHESIA [None]
  - MULTIPLE SCLEROSIS RELAPSE [None]
